FAERS Safety Report 18272838 (Version 1)
Quarter: 2020Q3

REPORT INFORMATION
  Report Type: Spontaneous
  Country: US (occurrence: US)
  Receive Date: 20200916
  Receipt Date: 20200916
  Transmission Date: 20201103
  Serious: Yes (Other)
  Sender: FDA-Public Use
  Company Number: None

PATIENT
  Age: 27 Year
  Sex: Female
  Weight: 75.3 kg

DRUGS (2)
  1. LEVOTHYROXINE 125MCG [Suspect]
     Active Substance: LEVOTHYROXINE SODIUM
     Route: 048
     Dates: start: 201305, end: 201306
  2. LEVOTHYROXINE 100MCG [Suspect]
     Active Substance: LEVOTHYROXINE
     Dosage: ?          OTHER DOSE:1 TABLET;?
     Route: 048
     Dates: start: 2013, end: 201305

REACTIONS (3)
  - Alopecia [None]
  - Foreign body sensation in eyes [None]
  - Fatigue [None]

NARRATIVE: CASE EVENT DATE: 20130614
